FAERS Safety Report 15747030 (Version 4)
Quarter: 2025Q3

REPORT INFORMATION
  Report Type: Spontaneous
  Country: EU (occurrence: EU)
  Receive Date: 20181220
  Receipt Date: 20250710
  Transmission Date: 20251021
  Serious: Yes (Other)
  Sender: JOHNSON AND JOHNSON
  Company Number: EU-JNJFOC-20171118038

PATIENT
  Age: 25 Year
  Sex: Female

DRUGS (16)
  1. DARUNAVIR [Suspect]
     Active Substance: DARUNAVIR
     Indication: HIV infection
     Dosage: 200 MILLIGRAM, DAILY,600/100 MG TWICE DAILY
     Route: 048
     Dates: start: 20151101
  2. DARUNAVIR [Suspect]
     Active Substance: DARUNAVIR
     Dosage: 2 DOSAGE FORM, ONCE A DAY (600/100 MG, BID)
     Route: 048
     Dates: start: 201511
  3. MARAVIROC [Suspect]
     Active Substance: MARAVIROC
     Indication: HIV infection
     Dosage: PRIOR DOSE OF 150 MG TWICE DAILY, RESTARTED AFTER SHE CAME BACK TO ITALY AT UNKNOWN DOSE
     Route: 065
     Dates: start: 20151101
  4. MARAVIROC [Suspect]
     Active Substance: MARAVIROC
     Route: 065
  5. MARAVIROC [Suspect]
     Active Substance: MARAVIROC
     Dosage: 300 MILLIGRAM, ONCE A DAY, 150 MG BID
     Route: 065
     Dates: start: 20151101
  6. RALTEGRAVIR [Suspect]
     Active Substance: RALTEGRAVIR
     Indication: HIV infection
     Route: 048
     Dates: start: 201511, end: 2016
  7. RALTEGRAVIR [Suspect]
     Active Substance: RALTEGRAVIR
     Route: 048
     Dates: start: 2016
  8. TENOFOVIR DISOPROXIL [Suspect]
     Active Substance: TENOFOVIR DISOPROXIL
     Indication: HIV infection
     Dosage: 300 MILLIGRAM, ONCE A DAY
     Route: 065
     Dates: start: 20151101
  9. TENOFOVIR DISOPROXIL [Suspect]
     Active Substance: TENOFOVIR DISOPROXIL
     Dosage: 300 MILLIGRAM, ONCE A DAY
     Route: 065
     Dates: start: 201511
  10. RITONAVIR [Suspect]
     Active Substance: RITONAVIR
     Indication: HIV infection
     Route: 065
     Dates: start: 20151101
  11. DOLUTEGRAVIR [Concomitant]
     Active Substance: DOLUTEGRAVIR
     Indication: HIV infection
     Route: 065
     Dates: start: 201605
  12. DOLUTEGRAVIR [Concomitant]
     Active Substance: DOLUTEGRAVIR
     Dosage: 100 MILLIGRAM, ONCE A DAY (50 MG, BID)
     Route: 065
     Dates: start: 201605
  13. DOLUTEGRAVIR [Concomitant]
     Active Substance: DOLUTEGRAVIR
     Dosage: 50 MILLIGRAM, ONCE A DAY
     Route: 065
     Dates: start: 201605
  14. DOLUTEGRAVIR [Concomitant]
     Active Substance: DOLUTEGRAVIR
     Dosage: UNK
     Route: 065
     Dates: start: 2016
  15. ZIDOVUDINE [Concomitant]
     Active Substance: ZIDOVUDINE
     Indication: Antiviral prophylaxis
  16. ZIDOVUDINE [Concomitant]
     Active Substance: ZIDOVUDINE
     Route: 042

REACTIONS (7)
  - Pathogen resistance [Not Recovered/Not Resolved]
  - Exposure during pregnancy [Recovered/Resolved]
  - Caesarean section [Unknown]
  - Normal newborn [Unknown]
  - Drug ineffective [Unknown]
  - Antiviral drug level below therapeutic [Not Recovered/Not Resolved]
  - Treatment noncompliance [Unknown]

NARRATIVE: CASE EVENT DATE: 20160401
